FAERS Safety Report 16838935 (Version 1)
Quarter: 2019Q3

REPORT INFORMATION
  Report Type: Spontaneous
  Country: US (occurrence: US)
  Receive Date: 20190923
  Receipt Date: 20190923
  Transmission Date: 20191005
  Serious: Yes (Other)
  Sender: FDA-Public Use
  Company Number: US-GLAXOSMITHKLINE-US2019AMR167014

PATIENT
  Age: 38 Year
  Sex: Female

DRUGS (1)
  1. NUCALA [Suspect]
     Active Substance: MEPOLIZUMAB
     Indication: PRODUCT USED FOR UNKNOWN INDICATION
     Dosage: 100 MG, UNK
     Route: 058

REACTIONS (7)
  - Dyspnoea [Unknown]
  - Injection site rash [Unknown]
  - Angioedema [Unknown]
  - Injection site reaction [Unknown]
  - Pharyngeal swelling [Unknown]
  - Anaphylactic reaction [Unknown]
  - Dermatitis [Unknown]

NARRATIVE: CASE EVENT DATE: 201908
